FAERS Safety Report 7062299-5 (Version None)
Quarter: 2010Q4

REPORT INFORMATION
  Report Type: 
  Country: None (occurrence: None)
  Receive Date: 20101026
  Receipt Date: 20101013
  Transmission Date: 20110411
  Serious: Yes (Hospitalization, Other)
  Sender: FDA-Public Use
  Company Number: US-AMGEN GMBH-QUU442215

PATIENT

DRUGS (3)
  1. NPLATE [Suspect]
     Indication: IDIOPATHIC THROMBOCYTOPENIC PURPURA
     Dosage: 1 A?G/KG, UNK
     Dates: start: 20100426, end: 20100621
  2. NPLATE [Suspect]
     Dates: start: 20100426, end: 20100621
  3. RITUXIMAB [Concomitant]
     Dosage: UNK UNK, UNK
     Dates: start: 20090817

REACTIONS (4)
  - CARDIAC DISORDER [None]
  - ECCHYMOSIS [None]
  - FALL [None]
  - NON-HODGKIN'S LYMPHOMA [None]
